FAERS Safety Report 5654577-9 (Version None)
Quarter: 2008Q1

REPORT INFORMATION
  Report Type: 
  Country: None (occurrence: None)
  Receive Date: 20080307
  Receipt Date: 20080227
  Transmission Date: 20080703
  Serious: Yes (Other)
  Sender: FDA-Public Use
  Company Number: US-JNJFOC-20080300467

PATIENT
  Sex: Female

DRUGS (3)
  1. DURAGESIC-100 [Suspect]
     Indication: NEPHROLITHIASIS
     Route: 062
  2. IBUPROFEN [Concomitant]
     Indication: PAIN
     Route: 048
  3. AMBIEN [Concomitant]
     Route: 048

REACTIONS (5)
  - ANTINUCLEAR ANTIBODY [None]
  - ARTHROPATHY [None]
  - DRUG INEFFECTIVE [None]
  - INAPPROPRIATE SCHEDULE OF DRUG ADMINISTRATION [None]
  - PHARMACEUTICAL PRODUCT COMPLAINT [None]
